FAERS Safety Report 10474183 (Version 1)
Quarter: 2014Q3

REPORT INFORMATION
  Report Type: Other
  Country: FR (occurrence: FR)
  Receive Date: 20140924
  Receipt Date: 20140924
  Transmission Date: 20150326
  Serious: Yes (Hospitalization, Other)
  Sender: FDA-Public Use
  Company Number: FR-TAKEDA-2014JNJ005490

PATIENT

DRUGS (9)
  1. SPIRIVA [Suspect]
     Active Substance: TIOTROPIUM BROMIDE MONOHYDRATE
     Indication: CHRONIC OBSTRUCTIVE PULMONARY DISEASE
     Dosage: UNK
     Route: 050
  2. PROCORALAN [Suspect]
     Active Substance: IVABRADINE
     Indication: CARDIAC FAILURE
     Dosage: 5 MG, BID
     Route: 048
  3. MECIR [Suspect]
     Active Substance: TAMSULOSIN HYDROCHLORIDE
     Indication: CARDIAC FAILURE
     Dosage: 0.4 MG, UNK
     Route: 048
  4. ZELITREX [Suspect]
     Active Substance: VALACYCLOVIR HYDROCHLORIDE
     Indication: OPPORTUNISTIC INFECTION PROPHYLAXIS
     Dosage: 1 G, QD
     Route: 048
     Dates: start: 201405
  5. TERBUTALINE [Suspect]
     Active Substance: TERBUTALINE
     Indication: CHRONIC OBSTRUCTIVE PULMONARY DISEASE
     Dosage: UNK
     Route: 050
  6. NEODEX [Suspect]
     Active Substance: DEXAMETHASONE\NEOMYCIN
     Indication: PLASMA CELL MYELOMA
     Dosage: 40 MG, 4 TIMES MONTHLY
     Route: 048
     Dates: start: 20140512, end: 20140811
  7. SYMBICORT [Suspect]
     Active Substance: BUDESONIDE\FORMOTEROL FUMARATE DIHYDRATE
     Indication: CHRONIC OBSTRUCTIVE PULMONARY DISEASE
     Dosage: UNK
     Route: 050
  8. VELCADE [Suspect]
     Active Substance: BORTEZOMIB
     Indication: PLASMA CELL MYELOMA
     Dosage: 1 MG/M2, UNK
     Route: 058
     Dates: start: 20140512, end: 20140811
  9. BACTRIM [Suspect]
     Active Substance: SULFAMETHOXAZOLE\TRIMETHOPRIM
     Indication: OPPORTUNISTIC INFECTION PROPHYLAXIS
     Dosage: 3 DF, WEEKLY
     Route: 048
     Dates: start: 201405

REACTIONS (4)
  - Ileus paralytic [Not Recovered/Not Resolved]
  - Pain [Not Recovered/Not Resolved]
  - Respiratory disorder [Unknown]
  - Urinary retention [Not Recovered/Not Resolved]

NARRATIVE: CASE EVENT DATE: 20140813
